FAERS Safety Report 8029137-5 (Version None)
Quarter: 2012Q1

REPORT INFORMATION
  Report Type: 
  Country: None (occurrence: None)
  Receive Date: 20120106
  Receipt Date: 20120102
  Transmission Date: 20120608
  Serious: Yes (Other)
  Sender: FDA-Public Use
  Company Number: PHHY2011BR105061

PATIENT
  Sex: Female

DRUGS (4)
  1. AMINOFILIN [Concomitant]
     Indication: EMPHYSEMA
     Dosage: 100 UNK, BID
  2. THEOPHYLLINE [Concomitant]
     Indication: EMPHYSEMA
     Dosage: 300 UG, BID
  3. FORMOTEROL FUMARATE [Suspect]
     Indication: EMPHYSEMA
     Dosage: 2 DF, QD
  4. SPIRIVA [Concomitant]
     Indication: EMPHYSEMA
     Dosage: 18 UG, BID

REACTIONS (3)
  - DRUG INEFFECTIVE [None]
  - EMPHYSEMA [None]
  - DYSPNOEA [None]
